FAERS Safety Report 22177783 (Version 1)
Quarter: 2023Q2

REPORT INFORMATION
  Report Type: Spontaneous
  Country: BR (occurrence: BR)
  Receive Date: 20230405
  Receipt Date: 20230405
  Transmission Date: 20230722
  Serious: Yes (Other)
  Sender: FDA-Public Use
  Company Number: BR-BIOMARINAP-BR-2023-149529

PATIENT

DRUGS (1)
  1. NAGLAZYME [Suspect]
     Active Substance: GALSULFASE
     Indication: Mucopolysaccharidosis VI
     Dosage: UNK, QW
     Route: 042

REACTIONS (9)
  - Spinal cord compression [Unknown]
  - Foramen magnum stenosis [Unknown]
  - Hypertonic bladder [Unknown]
  - Tracheostomy [Recovering/Resolving]
  - Choking [Recovering/Resolving]
  - Malaise [Recovering/Resolving]
  - Nervousness [Recovering/Resolving]
  - Bladder catheterisation [Unknown]
  - Respiratory distress [Recovering/Resolving]
